FAERS Safety Report 5527538-8 (Version None)
Quarter: 2007Q4

REPORT INFORMATION
  Report Type: 
  Country: None (occurrence: None)
  Receive Date: 20071123
  Receipt Date: 20071119
  Transmission Date: 20080405
  Serious: Yes (Hospitalization)
  Sender: FDA-Public Use
  Company Number: 2007SP023265

PATIENT
  Age: 73 Year
  Sex: Male
  Weight: 58 kg

DRUGS (7)
  1. PEG-INTRON [Suspect]
     Indication: HEPATITIS C
     Dosage: 60 MCG; QW; SC, 50 MCG; QW; SC, 40 MCG; QW; SC,
     Route: 058
     Dates: start: 20060601, end: 20060622
  2. PEG-INTRON [Suspect]
     Indication: HEPATITIS C
     Dosage: 60 MCG; QW; SC, 50 MCG; QW; SC, 40 MCG; QW; SC,
     Route: 058
     Dates: start: 20060629, end: 20060720
  3. PEG-INTRON [Suspect]
     Indication: HEPATITIS C
     Dosage: 60 MCG; QW; SC, 50 MCG; QW; SC, 40 MCG; QW; SC,
     Route: 058
     Dates: start: 20060727, end: 20061019
  4. REBETOL [Suspect]
     Indication: HEPATITIS C
     Dosage: 400 MG; QD; PO
     Route: 048
     Dates: start: 20060601, end: 20061019
  5. INTRON A [Concomitant]
  6. REBETOL [Concomitant]
  7. SUMIFERON /00596802/ [Concomitant]

REACTIONS (1)
  - HEAD INJURY [None]
